FAERS Safety Report 22359629 (Version 1)
Quarter: 2023Q2

REPORT INFORMATION
  Report Type: Spontaneous
  Country: KR (occurrence: KR)
  Receive Date: 20230524
  Receipt Date: 20230524
  Transmission Date: 20230722
  Serious: Yes (Other)
  Sender: FDA-Public Use
  Company Number: KR-MYLANLABS-2023M1053791

PATIENT
  Age: 33 Year
  Sex: Female

DRUGS (2)
  1. CELEBREX [Suspect]
     Active Substance: CELECOXIB
     Indication: Mononeuropathy
     Dosage: 1 DOSAGE FORM, QD (1 DAY)
     Route: 048
     Dates: start: 2017, end: 2017
  2. PREGABALIN [Suspect]
     Active Substance: PREGABALIN
     Indication: Mononeuropathy
     Dosage: 1 DOSAGE FORM, QD (1 DAY)
     Route: 048
     Dates: start: 2017, end: 2017

REACTIONS (1)
  - Respiratory distress [Recovered/Resolved]

NARRATIVE: CASE EVENT DATE: 20170101
